FAERS Safety Report 10983968 (Version 1)
Quarter: 2015Q2

REPORT INFORMATION
  Report Type: Spontaneous
  Country: US (occurrence: US)
  Receive Date: 20150403
  Receipt Date: 20150403
  Transmission Date: 20150821
  Serious: No
  Sender: FDA-Public Use
  Company Number: US-PFIZER INC-2015112015

PATIENT
  Age: 52 Year
  Sex: Female

DRUGS (3)
  1. BENADRYL [Concomitant]
     Active Substance: DIPHENHYDRAMINE HYDROCHLORIDE
     Dosage: UNK, AS NEEDED
  2. ADVIL [Suspect]
     Active Substance: IBUPROFEN
     Indication: PAIN
     Dosage: 400 MG, UNK
     Dates: start: 20150323, end: 20150324
  3. DILAUDID [Concomitant]
     Active Substance: HYDROMORPHONE HYDROCHLORIDE
     Indication: PAIN
     Dosage: 2 MG, AS NEEDED

REACTIONS (6)
  - Nausea [Unknown]
  - Abdominal pain [Unknown]
  - Constipation [Unknown]
  - Pain [Unknown]
  - Dysuria [Unknown]
  - Malaise [Unknown]

NARRATIVE: CASE EVENT DATE: 20150323
